FAERS Safety Report 16883101 (Version 2)
Quarter: 2020Q2

REPORT INFORMATION
  Report Type: Spontaneous
  Country: US (occurrence: US)
  Receive Date: 20191004
  Receipt Date: 20200601
  Transmission Date: 20200713
  Serious: No
  Sender: FDA-Public Use
  Company Number: US-SA-2019SA268259

PATIENT

DRUGS (6)
  1. DUPIXENT [Suspect]
     Active Substance: DUPILUMAB
     Dosage: 300 MG, Q3W
     Route: 058
  2. FLUOCINONIDE-E [Concomitant]
     Active Substance: FLUOCINONIDE
     Dosage: UNK
     Route: 065
  3. DUPIXENT [Suspect]
     Active Substance: DUPILUMAB
     Indication: DERMATITIS ATOPIC
     Dosage: 300 MG, QOW
     Route: 058
     Dates: start: 20190501
  4. TRIAMCINOLONE ACETONIDE. [Concomitant]
     Active Substance: TRIAMCINOLONE ACETONIDE
     Dosage: UNK
     Route: 065
  5. EUCRISA [Concomitant]
     Active Substance: CRISABOROLE
     Dosage: UNK
     Route: 065
  6. BETAMETHASONE DIPROPIONATE AUGMENTED [Concomitant]
     Active Substance: BETAMETHASONE DIPROPIONATE
     Dosage: UNK
     Route: 065

REACTIONS (6)
  - Therapeutic response shortened [Not Recovered/Not Resolved]
  - Rash [Unknown]
  - Joint effusion [Unknown]
  - Discomfort [Unknown]
  - Pruritus [Not Recovered/Not Resolved]
  - Intentional product misuse [Unknown]
